FAERS Safety Report 17756208 (Version 1)
Quarter: 2020Q2

REPORT INFORMATION
  Report Type: Spontaneous
  Country: US (occurrence: US)
  Receive Date: 20200507
  Receipt Date: 20200507
  Transmission Date: 20200714
  Serious: Yes (Hospitalization, Other)
  Sender: FDA-Public Use
  Company Number: US-MACLEODS PHARMACEUTICALS US LTD-MAC2020026370

PATIENT

DRUGS (1)
  1. TRIAMCINOLONE ACETONIDE. [Suspect]
     Active Substance: TRIAMCINOLONE ACETONIDE
     Indication: PRODUCT USED FOR UNKNOWN INDICATION
     Dosage: UNK, INJECTION
     Route: 042

REACTIONS (7)
  - Maculopathy [Recovered/Resolved]
  - Retinal degeneration [Unknown]
  - Visual impairment [Not Recovered/Not Resolved]
  - Retinal artery embolism [Recovered/Resolved]
  - Visual field defect [Not Recovered/Not Resolved]
  - Subretinal hyperreflective exudation [Recovered/Resolved]
  - Retinal artery occlusion [Recovered/Resolved]
